FAERS Safety Report 24614124 (Version 8)
Quarter: 2025Q1

REPORT INFORMATION
  Report Type: Report from Study
  Country: CA (occurrence: CA)
  Receive Date: 20241113
  Receipt Date: 20250127
  Transmission Date: 20250408
  Serious: Yes (Other)
  Sender: TAKEDA
  Company Number: CA-TAKEDA-2024TUS114111

PATIENT
  Age: 46 Year
  Sex: Male

DRUGS (8)
  1. VEDOLIZUMAB [Suspect]
     Active Substance: VEDOLIZUMAB
     Indication: Colitis ulcerative
  2. VEDOLIZUMAB [Suspect]
     Active Substance: VEDOLIZUMAB
     Dosage: 300 MILLIGRAM, Q4WEEKS
     Dates: start: 20241119
  3. VEDOLIZUMAB [Suspect]
     Active Substance: VEDOLIZUMAB
     Dosage: 300 MILLIGRAM, Q4WEEKS
  4. MESALAMINE [Concomitant]
     Active Substance: MESALAMINE
     Dosage: 4.8 GRAM, QD
     Dates: start: 2023
  5. LORAZEPAM [Concomitant]
     Active Substance: LORAZEPAM
     Indication: Anxiety
  6. ALBUTEROL [Concomitant]
     Active Substance: ALBUTEROL
     Indication: Asthma
  7. ASPIRIN [Concomitant]
     Active Substance: ASPIRIN
     Indication: Protein C deficiency
  8. ASPIRIN [Concomitant]
     Active Substance: ASPIRIN
     Indication: Protein S deficiency

REACTIONS (11)
  - Haematochezia [Recovering/Resolving]
  - Frequent bowel movements [Recovering/Resolving]
  - Defaecation urgency [Recovering/Resolving]
  - Drug ineffective [Unknown]
  - Lip swelling [Unknown]
  - Insomnia [Unknown]
  - Diarrhoea [Unknown]
  - Illness [Unknown]
  - Off label use [Unknown]
  - Decreased appetite [Unknown]
  - Influenza [Unknown]

NARRATIVE: CASE EVENT DATE: 20241119
